FAERS Safety Report 7314242-9 (Version None)
Quarter: 2011Q1

REPORT INFORMATION
  Report Type: 
  Country: None (occurrence: None)
  Receive Date: 20110225
  Receipt Date: 20100706
  Transmission Date: 20110831
  Serious: No
  Sender: FDA-Public Use
  Company Number: US-MYLANLABS-2010S1010871

PATIENT
  Age: 18 Year
  Sex: Female
  Weight: 65.77 kg

DRUGS (4)
  1. AMNESTEEM [Suspect]
     Indication: ACNE
     Route: 048
     Dates: start: 20100101
  2. AMNESTEEM [Suspect]
     Dosage: ALTERNATING EVERY OTHER DAY WITH ONE CAPSULE
     Route: 048
  3. AMNESTEEM [Suspect]
     Dosage: EVERY OTHER DAY
     Route: 048
     Dates: end: 20100601
  4. AMNESTEEM [Suspect]
     Dosage: EVERY OTHER DAY
     Route: 048

REACTIONS (1)
  - PLATELET COUNT DECREASED [None]
